FAERS Safety Report 7243409-3 (Version None)
Quarter: 2011Q1

REPORT INFORMATION
  Report Type: 
  Country: None (occurrence: None)
  Receive Date: 20110125
  Receipt Date: 20110118
  Transmission Date: 20110831
  Serious: Yes (Death, Hospitalization)
  Sender: FDA-Public Use
  Company Number: CA-CELGENEUS-028-C5013-10123102

PATIENT
  Sex: Male
  Weight: 62 kg

DRUGS (37)
  1. METFORMIN HCL [Concomitant]
     Route: 048
     Dates: start: 20100112
  2. PANTOLOC [Concomitant]
     Route: 048
     Dates: start: 20100713
  3. AMOXICILLIN AND CLAVULANATE POTASSIUM [Concomitant]
     Route: 048
     Dates: start: 20101019
  4. NEUPOGEN [Concomitant]
     Route: 058
     Dates: start: 20101216, end: 20101220
  5. EPEX [Concomitant]
     Indication: NEUTROPENIA
     Route: 058
     Dates: start: 20100211, end: 20101123
  6. NITRO-DUR [Concomitant]
     Indication: HYPERTENSION
     Route: 048
     Dates: start: 20060101
  7. FOLIC ACID [Concomitant]
     Indication: VITAMIN SUPPLEMENTATION
     Route: 048
     Dates: start: 20101105
  8. LEVOFLOXACIN [Concomitant]
     Indication: INFECTION PROPHYLAXIS
     Route: 048
     Dates: start: 20100202, end: 20100216
  9. CC-5013 [Suspect]
     Route: 048
     Dates: start: 20101123, end: 20101221
  10. FERROUS GLUCONATE [Concomitant]
     Route: 048
     Dates: start: 20070101
  11. ASPIRIN [Concomitant]
     Indication: THROMBOSIS PROPHYLAXIS
     Route: 048
     Dates: start: 19990101
  12. GLYBURIDE [Concomitant]
     Route: 048
     Dates: start: 20100316
  13. CHLORPROMAZINE [Concomitant]
     Indication: HICCUPS
     Route: 048
     Dates: start: 20100129, end: 20100201
  14. DEXAMETHASONE [Suspect]
     Indication: MULTIPLE MYELOMA
     Route: 065
     Dates: start: 20091215, end: 20100511
  15. NORVASC [Concomitant]
     Indication: HYPERTENSION
     Route: 048
     Dates: start: 20070101
  16. ATACAND [Concomitant]
     Indication: HYPERTENSION
     Route: 048
     Dates: start: 20070101
  17. METFORMIN HCL [Concomitant]
     Route: 048
     Dates: start: 20060101
  18. SLOW-K [Concomitant]
     Route: 048
     Dates: start: 20101022, end: 20101102
  19. CC-5013 [Suspect]
     Indication: MULTIPLE MYELOMA
     Route: 048
     Dates: start: 20091215
  20. RAMIPRIL [Concomitant]
     Indication: HYPERTENSION
     Route: 048
     Dates: start: 19990101
  21. BISOPROLOL [Concomitant]
     Indication: HYPERTENSION
     Route: 048
     Dates: start: 20050101
  22. PAMIDRONATE DISODIUM [Concomitant]
     Indication: PROPHYLAXIS
     Route: 051
     Dates: start: 20100423
  23. MAGNESIUM [Concomitant]
     Route: 048
     Dates: start: 20101123
  24. NEUPOGEN [Concomitant]
     Indication: PROPHYLAXIS
     Route: 058
     Dates: start: 20101116, end: 20101122
  25. NORMAL SALINE [Concomitant]
     Indication: DEHYDRATION
     Route: 051
     Dates: start: 20100202, end: 20100202
  26. KEFLEX [Concomitant]
     Route: 048
     Dates: start: 20100819, end: 20100827
  27. LIPITOR [Concomitant]
     Route: 048
     Dates: start: 20040101
  28. ELTROXIN [Concomitant]
     Indication: HYPOTHYROIDISM
     Route: 048
     Dates: start: 19890101
  29. NEUPOGEN [Concomitant]
     Route: 058
     Dates: start: 20110113, end: 20110117
  30. IMODIUM [Concomitant]
     Route: 048
     Dates: start: 20100405
  31. CALCIUM [Concomitant]
     Route: 048
     Dates: start: 20101123
  32. NEUPOGEN [Concomitant]
     Route: 058
     Dates: start: 20100210, end: 20100315
  33. MOXIFLOXACIN [Concomitant]
     Route: 048
     Dates: start: 20101013, end: 20101018
  34. VITAMIN B-12 [Concomitant]
     Indication: VITAMIN SUPPLEMENTATION
     Route: 048
     Dates: start: 20101105
  35. NEUPOGEN [Concomitant]
     Route: 058
     Dates: start: 20100921, end: 20100927
  36. NEUPOGEN [Concomitant]
     Route: 058
     Dates: start: 20101019, end: 20101021
  37. TYLENOL-500 [Concomitant]
     Route: 048
     Dates: start: 20101012, end: 20101014

REACTIONS (1)
  - CARDIO-RESPIRATORY ARREST [None]
